FAERS Safety Report 5144624-5 (Version None)
Quarter: 2006Q4

REPORT INFORMATION
  Report Type: 
  Country: None (occurrence: None)
  Receive Date: 20061031
  Receipt Date: 20061026
  Transmission Date: 20070319
  Serious: Yes (Hospitalization)
  Sender: FDA-Public Use
  Company Number: E2020-00633-SPO-JP

PATIENT
  Age: 78 Year
  Sex: Male

DRUGS (1)
  1. ARICEPT [Suspect]
     Indication: DEMENTIA
     Dosage: 5 MG, 1 IN 1 D, ORAL
     Route: 048

REACTIONS (7)
  - ABDOMINAL PAIN [None]
  - ANOREXIA [None]
  - BLOOD CREATINE PHOSPHOKINASE INCREASED [None]
  - DEHYDRATION [None]
  - FATIGUE [None]
  - ILEUS PARALYTIC [None]
  - TRANSAMINASES INCREASED [None]
